FAERS Safety Report 5028782-9 (Version None)
Quarter: 2006Q2

REPORT INFORMATION
  Report Type: 
  Country: None (occurrence: None)
  Receive Date: 20060619
  Receipt Date: 20060606
  Transmission Date: 20061013
  Serious: Yes (Hospitalization)
  Sender: FDA-Public Use
  Company Number: US-AVENTIS-200615106US

PATIENT
  Age: 72 Year
  Sex: Female

DRUGS (2)
  1. KETEK [Suspect]
     Dosage: DOSE: UNK
  2. LIPITOR [Suspect]
     Dosage: DOSE: UNK

REACTIONS (7)
  - ALANINE AMINOTRANSFERASE INCREASED [None]
  - ASPARTATE AMINOTRANSFERASE INCREASED [None]
  - ASTHENIA [None]
  - DYSPNOEA [None]
  - FATIGUE [None]
  - HEPATIC FAILURE [None]
  - RENAL IMPAIRMENT [None]
